FAERS Safety Report 19934495 (Version 2)
Quarter: 2022Q2

REPORT INFORMATION
  Report Type: Spontaneous
  Country: US (occurrence: None)
  Receive Date: 20211008
  Receipt Date: 20220524
  Transmission Date: 20220721
  Serious: Yes (Other)
  Sender: FDA-Public Use
  Company Number: 2021A757884

PATIENT
  Age: 67 Year
  Sex: Female
  Weight: 198.1 kg

DRUGS (31)
  1. NEXIUM [Suspect]
     Active Substance: ESOMEPRAZOLE MAGNESIUM
     Indication: Dyspepsia
     Route: 048
     Dates: start: 2008, end: 2020
  2. NEXIUM [Suspect]
     Active Substance: ESOMEPRAZOLE MAGNESIUM
     Indication: Gastrooesophageal reflux disease
     Route: 048
     Dates: start: 2008, end: 2020
  3. PRILOSEC [Suspect]
     Active Substance: OMEPRAZOLE MAGNESIUM
     Indication: Dyspepsia
     Route: 048
     Dates: start: 2008, end: 2020
  4. PRILOSEC [Suspect]
     Active Substance: OMEPRAZOLE MAGNESIUM
     Indication: Gastrooesophageal reflux disease
     Route: 048
     Dates: start: 2008, end: 2020
  5. PRILOSEC [Suspect]
     Active Substance: OMEPRAZOLE MAGNESIUM
     Indication: Dyspepsia
     Dosage: GENERIC
     Route: 065
  6. PRILOSEC [Suspect]
     Active Substance: OMEPRAZOLE MAGNESIUM
     Indication: Gastrooesophageal reflux disease
     Dosage: GENERIC
     Route: 065
  7. PRILOSEC OTC [Suspect]
     Active Substance: OMEPRAZOLE MAGNESIUM
     Indication: Dyspepsia
     Route: 048
     Dates: start: 2008, end: 2020
  8. PRILOSEC OTC [Suspect]
     Active Substance: OMEPRAZOLE MAGNESIUM
     Indication: Gastrooesophageal reflux disease
     Route: 048
     Dates: start: 2008, end: 2020
  9. TRAMADOL [Concomitant]
     Active Substance: TRAMADOL
     Dates: start: 2009, end: 2019
  10. AZITHROMYCIN [Concomitant]
     Active Substance: AZITHROMYCIN
     Dates: start: 2011
  11. NAPROXEN [Concomitant]
     Active Substance: NAPROXEN
     Dates: start: 2016, end: 2018
  12. AMOXICILLIN [Concomitant]
     Active Substance: AMOXICILLIN
     Dates: start: 2016
  13. PRAVASTATIN [Concomitant]
     Active Substance: PRAVASTATIN
     Dates: start: 2013, end: 2018
  14. MELOXICAM [Concomitant]
     Active Substance: MELOXICAM
     Dates: start: 2017
  15. ACETAMINOPHEN [Concomitant]
     Active Substance: ACETAMINOPHEN
     Dates: start: 2017
  16. IBUPROFEN [Concomitant]
     Active Substance: IBUPROFEN
     Dates: start: 2017
  17. ARIPIPRAZOLE [Concomitant]
     Active Substance: ARIPIPRAZOLE
     Dates: start: 2017
  18. CITALOPRAM [Concomitant]
     Active Substance: CITALOPRAM HYDROBROMIDE
     Dates: start: 2017
  19. METHYLPHENIDATE [Concomitant]
     Active Substance: METHYLPHENIDATE
     Dates: start: 2017
  20. TIZANIDINE [Concomitant]
     Active Substance: TIZANIDINE
     Dates: start: 2017
  21. HYDROCODONE [Concomitant]
     Active Substance: HYDROCODONE
     Dates: start: 2017
  22. VERAPAMIL [Concomitant]
     Active Substance: VERAPAMIL HYDROCHLORIDE
     Dates: start: 2017
  23. FENOFIBRATE [Concomitant]
     Active Substance: FENOFIBRATE
     Dates: start: 2017
  24. PROPRANOLOL [Concomitant]
     Active Substance: PROPRANOLOL HYDROCHLORIDE
     Dates: start: 2017
  25. LEVOTHYROXINE [Concomitant]
     Active Substance: LEVOTHYROXINE
     Dates: start: 2017
  26. DULOXETINE [Concomitant]
     Active Substance: DULOXETINE
     Dates: start: 2017
  27. FLUCONAZOLE [Concomitant]
     Active Substance: FLUCONAZOLE
     Dates: start: 2017
  28. ALPRAZOLAM [Concomitant]
     Active Substance: ALPRAZOLAM
     Dates: start: 2017
  29. TOPIRAMATE [Concomitant]
     Active Substance: TOPIRAMATE
     Dates: start: 2017
  30. SERTRALINE [Concomitant]
     Active Substance: SERTRALINE HYDROCHLORIDE
     Dates: start: 2017
  31. TYLENOL [Concomitant]
     Active Substance: ACETAMINOPHEN
     Dates: start: 2017

REACTIONS (1)
  - Chronic kidney disease [Not Recovered/Not Resolved]

NARRATIVE: CASE EVENT DATE: 20200101
